FAERS Safety Report 7064884-3 (Version None)
Quarter: 2010Q4

REPORT INFORMATION
  Report Type: 
  Country: None (occurrence: None)
  Receive Date: 20101027
  Receipt Date: 19890512
  Transmission Date: 20110411
  Serious: Yes (Death)
  Sender: FDA-Public Use
  Company Number: JP-ROCHE-890900084001

PATIENT
  Sex: Male

DRUGS (2)
  1. CEFTRIAXONE SODIUM [Suspect]
     Indication: PNEUMONIA
     Route: 042
     Dates: start: 19880402, end: 19880420
  2. CLINDAMYCIN [Concomitant]
     Route: 042
     Dates: start: 19880402, end: 19880420

REACTIONS (2)
  - DEATH [None]
  - HEPATIC ENZYME INCREASED [None]
